FAERS Safety Report 10046777 (Version 1)
Quarter: 2014Q1

REPORT INFORMATION
  Report Type: Report from Study
  Country: MX (occurrence: MX)
  Receive Date: 20140331
  Receipt Date: 20140331
  Transmission Date: 20141002
  Serious: Yes (Other)
  Sender: FDA-Public Use
  Company Number: PHHY2014MX038094

PATIENT
  Age: 86 Year
  Sex: Female

DRUGS (4)
  1. EXFORGE HCT [Suspect]
     Indication: HYPERTENSION
     Dosage: 1 DF (160/5/12.5 MG), DAILY
     Route: 048
     Dates: start: 201203, end: 201303
  2. EXFORGE HCT [Suspect]
     Dosage: 0.5 DF (160/5/12.5 MG), DAILY
     Route: 048
     Dates: start: 201303
  3. TAFIL [Concomitant]
     Indication: DEPRESSION
     Dosage: 1 DF (0.25 MG), 0.5 DF IN THE MORNING AND 0.5 DF AT NIGHT.
     Route: 048
  4. TAFIL [Concomitant]
     Indication: ANXIETY

REACTIONS (5)
  - Cataract [Not Recovered/Not Resolved]
  - Nervousness [Not Recovered/Not Resolved]
  - Malaise [Unknown]
  - Drug intolerance [Unknown]
  - Wrong technique in drug usage process [Not Recovered/Not Resolved]
